FAERS Safety Report 9788722 (Version 1)
Quarter: 2013Q4

REPORT INFORMATION
  Report Type: Spontaneous
  Country: IT (occurrence: IT)
  Receive Date: 20131230
  Receipt Date: 20131230
  Transmission Date: 20140711
  Serious: Yes (Hospitalization)
  Sender: FDA-Public Use
  Company Number: IT-TEVA-452987ISR

PATIENT
  Age: 79 Year
  Sex: Female
  Weight: 62 kg

DRUGS (9)
  1. VINCRISTINA TEVA ITALIA [Suspect]
     Indication: NON-HODGKIN^S LYMPHOMA
     Dosage: 2 MILLIGRAM DAILY;
     Route: 042
     Dates: start: 20120626, end: 20120813
  2. ENDOXAN BAXTER [Suspect]
     Indication: NON-HODGKIN^S LYMPHOMA
     Dosage: 1681 MILLIGRAM DAILY; POWDER FOR SOLUTION FOR INJECTION
     Route: 040
     Dates: start: 20120626, end: 20120813
  3. MABTHERA [Suspect]
     Indication: NON-HODGKIN^S LYMPHOMA
     Dosage: 630 MILLIGRAM DAILY;
     Route: 042
     Dates: start: 20120625, end: 20120813
  4. DELTACORTENE [Suspect]
     Indication: NON-HODGKIN^S LYMPHOMA
     Dosage: 50 MILLIGRAM DAILY;
     Route: 048
     Dates: start: 20120626, end: 20120817
  5. GRANULOKINE 30 MU [Concomitant]
     Indication: CHEMOTHERAPY CYTOKINE PROPHYLAXIS
     Dosage: 1 DOSAGE FORMS DAILY;
     Route: 058
     Dates: start: 20120820, end: 20120822
  6. ZOFRAN [Concomitant]
     Indication: PROPHYLAXIS OF NAUSEA AND VOMITING
     Dosage: 8 MILLIGRAM DAILY;
     Route: 042
     Dates: start: 20120626, end: 20120813
  7. DESAMETASONE FOSFATO HOSPIRA [Concomitant]
     Indication: PROPHYLAXIS OF NAUSEA AND VOMITING
     Dosage: 8 MILLIGRAM DAILY;
     Route: 042
     Dates: start: 20120626, end: 20120813
  8. ZYLORIC 300 MG [Concomitant]
     Indication: PREMEDICATION
     Dosage: 1 DOSAGE FORMS DAILY;
     Route: 048
     Dates: start: 20120601, end: 20131216
  9. SELEPARINA 5700IUANTIXA/0.6ML [Concomitant]
     Indication: THROMBOSIS PROPHYLAXIS
     Dosage: 1 DOSAGE FORMS DAILY;
     Route: 058
     Dates: start: 20120601, end: 20121109

REACTIONS (3)
  - Anaemia [Recovered/Resolved]
  - Febrile neutropenia [Recovered/Resolved]
  - Hyperglycaemia [Recovered/Resolved]
